FAERS Safety Report 9897761 (Version 2)
Quarter: 2014Q3

REPORT INFORMATION
  Report Type: Spontaneous
  Country: US (occurrence: US)
  Receive Date: 20140214
  Receipt Date: 20140815
  Transmission Date: 20150326
  Serious: Yes (Hospitalization, Other)
  Sender: FDA-Public Use
  Company Number: US-009507513-1402USA006727

PATIENT
  Sex: Female
  Weight: 83.9 kg

DRUGS (1)
  1. NUVARING [Suspect]
     Active Substance: ETHINYL ESTRADIOL\ETONOGESTREL
     Indication: PRODUCT USED FOR UNKNOWN INDICATION
     Dosage: UNK
     Route: 067
     Dates: start: 20100304, end: 20100325

REACTIONS (28)
  - Herpes zoster [Unknown]
  - Thrombophlebitis [Unknown]
  - Pulmonary embolism [Unknown]
  - Arthritis [Unknown]
  - Urine output decreased [Unknown]
  - Fibromyalgia [Unknown]
  - Phlebitis [Unknown]
  - Oropharyngeal pain [Unknown]
  - Migraine [Unknown]
  - Abdominal tenderness [Unknown]
  - Pyelonephritis [Unknown]
  - Urine odour abnormal [Unknown]
  - Hyperaesthesia [Unknown]
  - Menorrhagia [Unknown]
  - Hypertension [Unknown]
  - Hypokalaemia [Unknown]
  - Hypothyroidism [Unknown]
  - Decreased appetite [Unknown]
  - Back pain [Unknown]
  - Dysmenorrhoea [Unknown]
  - Pulmonary embolism [Unknown]
  - Anxiety [Unknown]
  - Nausea [Unknown]
  - Vomiting [Unknown]
  - Pelvic pain [Unknown]
  - Sepsis [Unknown]
  - Pyelonephritis [Unknown]
  - Anaemia [Unknown]

NARRATIVE: CASE EVENT DATE: 2010
